FAERS Safety Report 15051746 (Version 1)
Quarter: 2018Q2

REPORT INFORMATION
  Report Type: Other
  Country: US (occurrence: US)
  Receive Date: 20180622
  Receipt Date: 20180622
  Transmission Date: 20180711
  Serious: Yes (Hospitalization)
  Sender: FDA-Public Use
  Company Number: US-APPCO PHARMA LLC-2049847

PATIENT
  Age: 62 Year
  Sex: Female

DRUGS (2)
  1. CEFTRIAXONE. [Concomitant]
     Active Substance: CEFTRIAXONE
     Route: 065
  2. METRONIDAZOLE. [Suspect]
     Active Substance: METRONIDAZOLE
     Indication: SEPSIS
     Route: 065

REACTIONS (2)
  - Neurotoxicity [Not Recovered/Not Resolved]
  - Status epilepticus [Recovered/Resolved]
